FAERS Safety Report 4559507-9 (Version None)
Quarter: 2005Q1

REPORT INFORMATION
  Report Type: 
  Country: None (occurrence: None)
  Receive Date: 20050124
  Receipt Date: 20021114
  Transmission Date: 20050727
  Serious: Yes (Other)
  Sender: FDA-Public Use
  Company Number: US-GLAXOSMITHKLINE-A0386651A

PATIENT
  Age: 78 Year
  Sex: Female

DRUGS (4)
  1. ADVAIR DISKUS 100/50 [Suspect]
     Indication: ASTHMA
     Route: 055
     Dates: start: 20000101
  2. FLONASE [Suspect]
     Indication: ASTHMA
     Route: 045
  3. SUDAFED 12 HOUR [Suspect]
  4. OXYGEN [Concomitant]

REACTIONS (4)
  - DYSPEPSIA [None]
  - EPISTAXIS [None]
  - FLATULENCE [None]
  - MACULAR DEGENERATION [None]
